FAERS Safety Report 20215528 (Version 1)
Quarter: 2021Q4

REPORT INFORMATION
  Report Type: Spontaneous
  Country: PL (occurrence: PL)
  Receive Date: 20211222
  Receipt Date: 20211222
  Transmission Date: 20220303
  Serious: Yes (Other)
  Sender: FDA-Public Use
  Company Number: PL-SUN PHARMACEUTICAL INDUSTRIES LTD-2021RR-321204

PATIENT
  Age: 60 Year
  Sex: Female

DRUGS (1)
  1. SUNITINIB [Suspect]
     Active Substance: SUNITINIB
     Indication: Renal cancer recurrent
     Dosage: 17 TREATMENT CYCLES
     Route: 065
     Dates: end: 201206

REACTIONS (2)
  - Myocardial ischaemia [Unknown]
  - Disease progression [Unknown]
